FAERS Safety Report 21051374 (Version 2)
Quarter: 2022Q3

REPORT INFORMATION
  Report Type: Spontaneous
  Country: US (occurrence: None)
  Receive Date: 20220707
  Receipt Date: 20220816
  Transmission Date: 20221027
  Serious: Yes (Hospitalization)
  Sender: FDA-Public Use
  Company Number: 2022A239177

PATIENT
  Age: 22767 Day
  Sex: Male

DRUGS (1)
  1. FASENRA [Suspect]
     Active Substance: BENRALIZUMAB
     Indication: Asthma
     Dosage: 30MG/ML EVERY EIGHT WEEKS
     Route: 058
     Dates: start: 202105

REACTIONS (4)
  - Gallbladder rupture [Recovered/Resolved]
  - Product dose omission issue [Not Recovered/Not Resolved]
  - Device delivery system issue [Unknown]
  - Device leakage [Unknown]

NARRATIVE: CASE EVENT DATE: 20220423
